FAERS Safety Report 9346980 (Version 2)
Quarter: 2013Q2

REPORT INFORMATION
  Report Type: Spontaneous
  Country: US (occurrence: US)
  Receive Date: 20130613
  Receipt Date: 20130624
  Transmission Date: 20140414
  Serious: Yes (Other)
  Sender: FDA-Public Use
  Company Number: US-DYAX CORP.-2013DX000116

PATIENT
  Age: 24 Year
  Sex: Female
  Weight: 56.75 kg

DRUGS (4)
  1. KALBITOR [Suspect]
     Indication: HEREDITARY ANGIOEDEMA
     Route: 058
     Dates: start: 20130514, end: 20130514
  2. KALBITOR [Suspect]
     Route: 058
     Dates: start: 20130510, end: 20130510
  3. STRYONOLOCTONE [Concomitant]
     Indication: ASTHMA
     Route: 048
  4. ESTRADIOL [Concomitant]
     Indication: PRODUCT USED FOR UNKNOWN INDICATION
     Route: 048

REACTIONS (8)
  - Loss of consciousness [Recovered/Resolved]
  - Hypotension [Recovered/Resolved]
  - Muscular weakness [Unknown]
  - Mydriasis [Unknown]
  - Anxiety [Unknown]
  - Pallor [Unknown]
  - Fatigue [Unknown]
  - Hereditary angioedema [Unknown]
